FAERS Safety Report 13485747 (Version 3)
Quarter: 2017Q2

REPORT INFORMATION
  Report Type: Other
  Country: US (occurrence: US)
  Receive Date: 20170426
  Receipt Date: 20170531
  Transmission Date: 20170830
  Serious: No
  Sender: FDA-Public Use
  Company Number: US-SHIRE-US201709323

PATIENT
  Age: 90 Year
  Sex: Female

DRUGS (3)
  1. WARFARIN [Concomitant]
     Active Substance: WARFARIN
     Indication: RED BLOOD CELL ABNORMALITY
     Dosage: 3 MG (DAILY FOR 3 DAYS) 4MG (DAILY FOR OTHER 4 DAYS), OTHER
     Route: 065
  2. METOPROLOL. [Concomitant]
     Active Substance: METOPROLOL
     Indication: ATRIAL FIBRILLATION
     Dosage: 50 MG, 2X/DAY:BID
     Route: 065
  3. XIIDRA [Suspect]
     Active Substance: LIFITEGRAST
     Indication: DRY EYE
     Dosage: 1 GTT EACH EYE, 2X/DAY:BID
     Route: 047
     Dates: start: 20170420, end: 201705

REACTIONS (7)
  - Product quality issue [Unknown]
  - Instillation site discomfort [Unknown]
  - Instillation site pain [Recovering/Resolving]
  - Instillation site irritation [Not Recovered/Not Resolved]
  - Headache [Recovered/Resolved]
  - Incorrect dose administered [Unknown]
  - Wrong technique in product usage process [Not Recovered/Not Resolved]

NARRATIVE: CASE EVENT DATE: 20170420
